FAERS Safety Report 6055007-8 (Version None)
Quarter: 2009Q1

REPORT INFORMATION
  Report Type: 
  Country: None (occurrence: None)
  Receive Date: 20090122
  Receipt Date: 20090114
  Transmission Date: 20090719
  Serious: Yes (Other)
  Sender: FDA-Public Use
  Company Number: GXKR2009GB00794

PATIENT
  Age: 46 Year
  Sex: Female
  Weight: 106 kg

DRUGS (7)
  1. CLARITHROMYCIN [Suspect]
     Indication: LOWER RESPIRATORY TRACT INFECTION
     Dosage: 500 MG, ORAL
     Route: 048
     Dates: start: 20081128, end: 20081130
  2. AMOXICILLIN [Concomitant]
  3. FLUTICASONE PROPIONATE [Concomitant]
  4. MONTELUKAST SODIUM [Concomitant]
  5. PREDNISOLONE [Concomitant]
  6. SALBUTAMOL (SALBUTAMOL) [Concomitant]
  7. SALMETEROL (SALMETEROL) [Concomitant]

REACTIONS (1)
  - DYSPNOEA [None]
